FAERS Safety Report 7961843-0 (Version None)
Quarter: 2011Q4

REPORT INFORMATION
  Report Type: 
  Country: None (occurrence: None)
  Receive Date: 20111207
  Receipt Date: 20111207
  Transmission Date: 20120403
  Serious: Yes (Other)
  Sender: FDA-Public Use
  Company Number: None

PATIENT
  Age: 55 Year
  Sex: Male
  Weight: 154.22 kg

DRUGS (1)
  1. DIOVAN [Suspect]
     Indication: HYPERTENSION
     Dosage: 1
     Route: 048
     Dates: start: 20070101, end: 20111206

REACTIONS (3)
  - VEIN DISORDER [None]
  - OEDEMA PERIPHERAL [None]
  - VASCULAR INJURY [None]
